FAERS Safety Report 9188308 (Version 1)
Quarter: 2013Q1

REPORT INFORMATION
  Report Type: Spontaneous
  Country: US (occurrence: US)
  Receive Date: 20130325
  Receipt Date: 20130325
  Transmission Date: 20140127
  Serious: No
  Sender: FDA-Public Use
  Company Number: US-MYLANLABS-2012S1015788

PATIENT
  Age: 75 Year
  Sex: Female

DRUGS (2)
  1. FENTANYL TRANSDERMAL SYSTEM [Suspect]
     Indication: PAIN
     Dosage: Q72 HOURS
     Route: 062
  2. FENTANYL TRANSDERMAL SYSTEM [Suspect]
     Route: 062

REACTIONS (3)
  - Dizziness [Not Recovered/Not Resolved]
  - Incorrect dose administered [Recovered/Resolved]
  - Expired drug administered [Recovered/Resolved]
